FAERS Safety Report 8443524-2 (Version None)
Quarter: 2012Q2

REPORT INFORMATION
  Report Type: 
  Country: None (occurrence: None)
  Receive Date: 20120618
  Receipt Date: 20120615
  Transmission Date: 20120825
  Serious: No
  Sender: FDA-Public Use
  Company Number: US-PFIZER INC-2012145026

PATIENT
  Sex: Female
  Weight: 54.422 kg

DRUGS (4)
  1. CHANTIX [Suspect]
     Dosage: 1 MG, 2X/DAY
     Route: 048
     Dates: start: 20120601, end: 20120601
  2. CHANTIX [Suspect]
     Dosage: 1MG ONCE IN THE NIGHT
     Route: 048
     Dates: start: 20120601, end: 20120615
  3. CHANTIX [Suspect]
     Dosage: 0.5 MG, 2X/DAY
     Route: 048
     Dates: start: 20120601, end: 20120601
  4. CHANTIX [Suspect]
     Indication: SMOKING CESSATION THERAPY
     Dosage: 0.5 MG, 1X/DAY
     Route: 048
     Dates: start: 20120601, end: 20120601

REACTIONS (5)
  - DIZZINESS [None]
  - NAUSEA [None]
  - HEADACHE [None]
  - DYSPEPSIA [None]
  - DIARRHOEA [None]
